FAERS Safety Report 8861164 (Version 1)
Quarter: 2012Q4

REPORT INFORMATION
  Report Type: 
  Country: US (occurrence: US)
  Receive Date: 20121025
  Receipt Date: 20121025
  Transmission Date: 20130627
  Serious: No
  Sender: FDA-Public Use
  Company Number: US-AMGEN-USASP2012015191

PATIENT
  Sex: Male
  Weight: 74.83 kg

DRUGS (6)
  1. ENBREL [Suspect]
     Indication: PRODUCT USED FOR UNKNOWN INDICATION
  2. ZANTAC 75 DISSOLVE [Concomitant]
     Dosage: UNK
     Route: 048
  3. PRILOSEC                           /00661201/ [Concomitant]
     Dosage: 10 mg, UNK
     Route: 048
  4. MOTRIN [Concomitant]
     Dosage: 400 mg, UNK
     Route: 048
  5. MULTIVITAMIN                       /00097801/ [Concomitant]
     Dosage: UNK
     Route: 048
  6. CALCIUM [Concomitant]
     Dosage: UNK
     Route: 048

REACTIONS (3)
  - Stomatitis [Unknown]
  - Headache [Unknown]
  - Injection site urticaria [Unknown]
